FAERS Safety Report 9794683 (Version 1)
Quarter: 2014Q1

REPORT INFORMATION
  Report Type: Spontaneous
  Country: US (occurrence: US)
  Receive Date: 20140102
  Receipt Date: 20140102
  Transmission Date: 20141002
  Serious: No
  Sender: FDA-Public Use
  Company Number: US-BAXTER-2013BAX009662

PATIENT
  Sex: Female

DRUGS (1)
  1. TISSEEL KIT VH S/D [Suspect]
     Indication: KNEE ARTHROPLASTY
     Route: 065

REACTIONS (3)
  - Blister [Unknown]
  - Pruritus [Unknown]
  - Erythema [Unknown]
